FAERS Safety Report 9275178 (Version 2)
Quarter: 2013Q4

REPORT INFORMATION
  Report Type: Spontaneous
  Country: US (occurrence: US)
  Receive Date: 20130507
  Receipt Date: 20131011
  Transmission Date: 20140711
  Serious: Yes (Hospitalization, Other)
  Sender: FDA-Public Use
  Company Number: US-JNJFOC-20130415449

PATIENT
  Age: 77 Year
  Sex: Female
  Weight: 46.72 kg

DRUGS (9)
  1. REMICADE [Suspect]
     Indication: COLITIS ULCERATIVE
     Dosage: EVERY 5 TO 8 WEEKS
     Route: 042
     Dates: start: 201302, end: 201308
  2. REMICADE [Suspect]
     Indication: COLITIS ULCERATIVE
     Route: 042
     Dates: start: 20130202
  3. PREDNISONE [Suspect]
     Indication: PREMEDICATION
     Route: 065
     Dates: start: 20130202
  4. ASACOL [Suspect]
     Indication: COLITIS ULCERATIVE
     Dosage: 800MG/2 TABLETS 3 TIMES A DAY
     Route: 048
     Dates: start: 2009
  5. METOPROLOL [Concomitant]
     Indication: CARDIAC DISORDER
     Route: 048
     Dates: start: 2001
  6. WARFARIN [Concomitant]
     Indication: ATRIAL FIBRILLATION
     Dosage: VARIES
     Route: 048
     Dates: start: 2001
  7. WARFARIN [Concomitant]
     Indication: ATRIAL FIBRILLATION
     Route: 048
  8. MULTIVITAMINS WITH IRON [Concomitant]
     Indication: BLOOD IRON DECREASED
     Dosage: ONCE EVERY OTHER DAY
     Route: 048
  9. ALIGN PROBIOTIC [Concomitant]
     Indication: IMMUNE SYSTEM DISORDER
     Route: 048

REACTIONS (3)
  - Weight increased [Recovered/Resolved]
  - Local swelling [Recovered/Resolved]
  - Alopecia [Not Recovered/Not Resolved]
